FAERS Safety Report 23970578 (Version 2)
Quarter: 2024Q2

REPORT INFORMATION
  Report Type: Spontaneous
  Country: NL (occurrence: NL)
  Receive Date: 20240613
  Receipt Date: 20240628
  Transmission Date: 20240716
  Serious: Yes (Hospitalization)
  Sender: FDA-Public Use
  Company Number: NL-TEVA-VS-3208495

PATIENT
  Age: 8 Year
  Sex: Female
  Weight: 22 kg

DRUGS (5)
  1. FENTANYL [Suspect]
     Active Substance: FENTANYL\FENTANYL CITRATE
     Indication: Pain
     Route: 042
     Dates: start: 2010, end: 2010
  2. FENTANYL [Suspect]
     Active Substance: FENTANYL\FENTANYL CITRATE
     Indication: Pain
     Dosage: RECEIVED 2 DOSES
     Route: 042
     Dates: start: 2010, end: 2010
  3. BACLOFEN [Interacting]
     Active Substance: BACLOFEN
     Indication: Cerebral palsy
     Dosage: PUMP
     Route: 037
     Dates: start: 2010
  4. VALPROIC ACID [Concomitant]
     Active Substance: VALPROIC ACID
     Indication: Epilepsy
  5. PIRITRAMIDE [Interacting]
     Active Substance: PIRITRAMIDE
     Indication: Pain
     Route: 042
     Dates: start: 2010, end: 2010

REACTIONS (3)
  - Depressed level of consciousness [Recovered/Resolved]
  - Overdose [Unknown]
  - Drug interaction [Unknown]

NARRATIVE: CASE EVENT DATE: 20100101
